FAERS Safety Report 9349597 (Version 3)
Quarter: 2014Q1

REPORT INFORMATION
  Report Type: Spontaneous
  Country: US (occurrence: US)
  Receive Date: 20130614
  Receipt Date: 20140225
  Transmission Date: 20141002
  Serious: Yes (Death, Hospitalization)
  Sender: FDA-Public Use
  Company Number: US-B.I. PHARMACEUTICALS,INC./RIDGEFIELD-2013-BI-16567BP

PATIENT
  Sex: Female
  Weight: 53.98 kg

DRUGS (10)
  1. PRADAXA [Suspect]
     Indication: THROMBOSIS PROPHYLAXIS
  2. PRADAXA [Suspect]
     Indication: ATRIAL FIBRILLATION
  3. DILTIAZEM [Concomitant]
     Route: 065
  4. DIGOXIN [Concomitant]
     Route: 065
  5. DIOVAN [Concomitant]
     Dosage: 160 MG
     Route: 048
     Dates: start: 20110926
  6. LASIX [Concomitant]
     Dosage: 40 MG
     Route: 048
     Dates: start: 20110412
  7. KLOR-CON [Concomitant]
     Dosage: 20 MEQ
     Route: 048
     Dates: start: 20110916
  8. FOLIC ACID [Concomitant]
     Dosage: 1 MG
     Route: 048
     Dates: start: 20111013
  9. IRON [Concomitant]
     Route: 065
  10. PRADAXA [Suspect]
     Indication: CEREBROVASCULAR ACCIDENT PROPHYLAXIS
     Dosage: 150 MG
     Route: 048
     Dates: start: 20110607, end: 20111227

REACTIONS (9)
  - Haemorrhagic anaemia [Unknown]
  - Prothrombin time prolonged [Unknown]
  - Thrombocytopenia [Unknown]
  - Renal failure acute [Unknown]
  - Hyperkalaemia [Unknown]
  - Urinary tract infection [Unknown]
  - Contusion [Unknown]
  - Blood blister [Unknown]
  - Gastrointestinal haemorrhage [Fatal]
